FAERS Safety Report 25480875 (Version 6)
Quarter: 2025Q4

REPORT INFORMATION
  Report Type: Report from Study
  Country: US (occurrence: US)
  Receive Date: 20250625
  Receipt Date: 20251010
  Transmission Date: 20260118
  Serious: Yes (Hospitalization, Other)
  Sender: MALLINCKRODT
  Company Number: US-MALLINCKRODT-MNK202503788

PATIENT
  Age: 71 Year
  Sex: Male

DRUGS (1)
  1. CORTICOTROPIN [Suspect]
     Active Substance: CORTICOTROPIN
     Indication: Pulmonary sarcoidosis
     Dosage: 80 UNITS
     Route: 058
     Dates: start: 20250613, end: 2025

REACTIONS (11)
  - Oxygen saturation decreased [Unknown]
  - Vomiting [Recovering/Resolving]
  - Hypertension [Not Recovered/Not Resolved]
  - Cardiac failure congestive [Not Recovered/Not Resolved]
  - Vasodilatation [Unknown]
  - Memory impairment [Unknown]
  - Exercise tolerance decreased [Unknown]
  - Back pain [Unknown]
  - Drug hypersensitivity [Unknown]
  - Injection site mass [Recovering/Resolving]
  - Fatigue [Unknown]

NARRATIVE: CASE EVENT DATE: 20250101
